FAERS Safety Report 9314981 (Version 2)
Quarter: 2013Q2

REPORT INFORMATION
  Report Type: Spontaneous
  Country: US (occurrence: US)
  Receive Date: 20130529
  Receipt Date: 20130612
  Transmission Date: 20140414
  Serious: Yes (Death, Life-Threatening, Hospitalization)
  Sender: FDA-Public Use
  Company Number: US-GLAXOSMITHKLINE-A1024287A

PATIENT
  Age: 74 Year
  Sex: Male

DRUGS (14)
  1. VOTRIENT [Suspect]
     Indication: RENAL CELL CARCINOMA
     Dosage: 800MG PER DAY
     Route: 048
     Dates: start: 20130216
  2. FUROSEMIDE [Concomitant]
  3. CITALOPRAM [Concomitant]
  4. LISINOPRIL [Concomitant]
  5. ALLOPURINOL [Concomitant]
  6. ASPIRIN [Concomitant]
  7. GLIMEPIRIDE [Concomitant]
  8. OMEPRAZOLE [Concomitant]
  9. POTASSIUM [Concomitant]
  10. METFORMIN [Concomitant]
  11. FENOFIBRATE [Concomitant]
  12. TERAZOSIN [Concomitant]
  13. VERAPAMIL [Concomitant]
  14. SIMVASTATIN [Concomitant]

REACTIONS (1)
  - Malnutrition [Fatal]
